FAERS Safety Report 9348748 (Version 2)
Quarter: 2013Q3

REPORT INFORMATION
  Report Type: Report from Study
  Country: ID (occurrence: ID)
  Receive Date: 20130614
  Receipt Date: 20130903
  Transmission Date: 20140515
  Serious: Yes (Hospitalization)
  Sender: FDA-Public Use
  Company Number: ID-SANOFI-AVENTIS-2013SA058337

PATIENT
  Age: 32 Year
  Sex: Male

DRUGS (2)
  1. PRIMAQUINE [Suspect]
     Indication: PRODUCT USED FOR UNKNOWN INDICATION
     Route: 065
  2. ARTESUNATE/PYRONARIDINE TETRAPHOSPHATE [Suspect]
     Indication: PRODUCT USED FOR UNKNOWN INDICATION
     Route: 065

REACTIONS (6)
  - Road traffic accident [Recovered/Resolved with Sequelae]
  - Loss of consciousness [Recovered/Resolved with Sequelae]
  - Head injury [Recovered/Resolved with Sequelae]
  - Ear haemorrhage [Recovered/Resolved with Sequelae]
  - Haematoma [Recovered/Resolved with Sequelae]
  - Back pain [Recovered/Resolved with Sequelae]
